FAERS Safety Report 19924311 (Version 3)
Quarter: 2021Q4

REPORT INFORMATION
  Report Type: Report from Study
  Country: KR (occurrence: KR)
  Receive Date: 20211006
  Receipt Date: 20211019
  Transmission Date: 20220303
  Serious: Yes (Hospitalization)
  Sender: FDA-Public Use
  Company Number: KR-GLAXOSMITHKLINE-KR2021204882

PATIENT
  Age: 71 Year
  Sex: Male
  Weight: 58.7 kg

DRUGS (41)
  1. DOSTARLIMAB [Suspect]
     Active Substance: DOSTARLIMAB
     Indication: Non-small cell lung cancer
     Dosage: DOSE AT CYCLE 1 - DAY 1
     Route: 042
     Dates: start: 20210507, end: 20210507
  2. DOSTARLIMAB [Suspect]
     Active Substance: DOSTARLIMAB
     Dosage: DOSE AT DAY 1
     Route: 042
     Dates: start: 20210526, end: 20210526
  3. DOSTARLIMAB [Suspect]
     Active Substance: DOSTARLIMAB
     Dosage: DOSE AT DAY 1
     Route: 042
     Dates: start: 20210616, end: 20210616
  4. DOSTARLIMAB [Suspect]
     Active Substance: DOSTARLIMAB
     Dosage: DOSE AT DAY 1
     Route: 042
     Dates: start: 20210707, end: 20210707
  5. DOSTARLIMAB [Suspect]
     Active Substance: DOSTARLIMAB
     Dosage: DOSE AT DAY 1
     Route: 042
     Dates: start: 20210728, end: 20210728
  6. DOSTARLIMAB [Suspect]
     Active Substance: DOSTARLIMAB
     Dosage: DOSE AT DAY 1
     Route: 042
     Dates: start: 20210818, end: 20210818
  7. DOSTARLIMAB [Suspect]
     Active Substance: DOSTARLIMAB
     Dosage: DOSE AT DAY 1
     Route: 042
     Dates: start: 20210908, end: 20210908
  8. COBOLIMAB [Suspect]
     Active Substance: COBOLIMAB
     Indication: Non-small cell lung cancer
     Dosage: DOSE AT CYCLE 1 - DAY 1
     Route: 042
     Dates: start: 20210507, end: 20210507
  9. COBOLIMAB [Suspect]
     Active Substance: COBOLIMAB
     Dosage: DOSE AT DAY 1
     Route: 042
     Dates: start: 20210526, end: 20210526
  10. COBOLIMAB [Suspect]
     Active Substance: COBOLIMAB
     Dosage: DOSE AT DAY 1
     Route: 042
     Dates: start: 20210616, end: 20210616
  11. COBOLIMAB [Suspect]
     Active Substance: COBOLIMAB
     Dosage: DOSE AT DAY 1
     Route: 042
     Dates: start: 20210707, end: 20210707
  12. COBOLIMAB [Suspect]
     Active Substance: COBOLIMAB
     Dosage: DOSE AT DAY 1
     Route: 042
     Dates: start: 20210728, end: 20210728
  13. COBOLIMAB [Suspect]
     Active Substance: COBOLIMAB
     Dosage: DOSE AT DAY 1
     Route: 042
     Dates: start: 20210818, end: 20210818
  14. COBOLIMAB [Suspect]
     Active Substance: COBOLIMAB
     Dosage: DOSE AT DAY 1
     Route: 042
     Dates: start: 20210908, end: 20210908
  15. DOCETAXEL [Suspect]
     Active Substance: DOCETAXEL
     Indication: Non-small cell lung cancer
     Dosage: DOSE AT CYCLE 1 - DAY 1
     Route: 042
     Dates: start: 20210507, end: 20210507
  16. DOCETAXEL [Suspect]
     Active Substance: DOCETAXEL
     Dosage: DOSE AT DAY 1
     Route: 042
     Dates: start: 20210526, end: 20210526
  17. DOCETAXEL [Suspect]
     Active Substance: DOCETAXEL
     Dosage: DOSE AT DAY 1
     Route: 042
     Dates: start: 20210616, end: 20210616
  18. DOCETAXEL [Suspect]
     Active Substance: DOCETAXEL
     Dosage: DOSE AT DAY 1
     Route: 042
     Dates: start: 20210707, end: 20210707
  19. DOCETAXEL [Suspect]
     Active Substance: DOCETAXEL
     Dosage: DOSE AT DAY 1
     Route: 042
     Dates: start: 20210728, end: 20210728
  20. DOCETAXEL [Suspect]
     Active Substance: DOCETAXEL
     Dosage: DOSE AT DAY 1
     Route: 042
     Dates: start: 20210818, end: 20210818
  21. DOCETAXEL [Suspect]
     Active Substance: DOCETAXEL
     Dosage: DOSE AT DAY 1
     Route: 042
     Dates: start: 20210908, end: 20210908
  22. SPIRIVA RESPIMAT [Concomitant]
     Active Substance: TIOTROPIUM BROMIDE
     Indication: Chronic obstructive pulmonary disease
     Dosage: UNK, QD
     Route: 055
     Dates: start: 20190502, end: 20210929
  23. SYMBICORT [Concomitant]
     Active Substance: BUDESONIDE\FORMOTEROL FUMARATE DIHYDRATE
     Indication: Chronic obstructive pulmonary disease
     Dosage: UNK UNK, BID
     Route: 055
     Dates: start: 20190502, end: 20210929
  24. LEVOTHYROXINE SODIUM [Concomitant]
     Active Substance: LEVOTHYROXINE SODIUM
     Indication: Hypothyroidism
     Dosage: 75 UG (FREQUENCY = ONCE DAILY)
     Route: 048
     Dates: start: 20201229, end: 20210929
  25. NALOXONE HYDROCHLORIDE\OXYCODONE HYDROCHLORIDE [Concomitant]
     Active Substance: NALOXONE HYDROCHLORIDE\OXYCODONE HYDROCHLORIDE
     Indication: Musculoskeletal chest pain
     Dosage: 1 TABLET (FREQUENCY = TWICE DAILY)
     Route: 048
     Dates: start: 20210414, end: 20210929
  26. LYRICA [Concomitant]
     Active Substance: PREGABALIN
     Indication: Musculoskeletal chest pain
     Dosage: 75 MG (FREQUENCY = TWICE DAILY)
     Route: 048
     Dates: start: 20210414, end: 20210929
  27. MOSAPIT [Concomitant]
     Indication: Gastrointestinal disorder prophylaxis
     Dosage: 5 MG (FREQUENCY = THREE TIMES DAILY)
     Route: 048
     Dates: start: 20210508, end: 20210929
  28. HARNAL [Concomitant]
     Active Substance: TAMSULOSIN HYDROCHLORIDE
     Indication: Prophylaxis
     Dosage: 0.2 MG (FREQUENCY = ONCE DAILY)
     Route: 048
     Dates: start: 20210508, end: 20210929
  29. GINEXIN-F [Concomitant]
     Indication: Hypertension
     Dosage: 40 MG (FREQUENCY = TWICE DAILY)
     Route: 048
     Dates: start: 20210508, end: 20210929
  30. PENIRAMIN [Concomitant]
     Indication: Chronic obstructive pulmonary disease
     Dosage: 1 TABLET (FREQUENCY = THREE TIMES DAILY)
     Route: 048
     Dates: start: 20210508, end: 20210929
  31. RECOSTAR [Concomitant]
     Indication: Gastrointestinal disorder prophylaxis
     Dosage: 1 TABLET (FREQUENCY = THREE TIMES DAILY)
     Route: 048
     Dates: start: 20210508, end: 20210929
  32. SINGULMON [Concomitant]
     Indication: Chronic obstructive pulmonary disease
     Dosage: 10 MG (FREQUENCY = THREE TIMES DAILY)
     Route: 048
     Dates: start: 20210508, end: 20210929
  33. MEDILAC-DS ENTERIC [Concomitant]
     Indication: Gastrointestinal disorder prophylaxis
     Dosage: 1 CAPSULE (FREQUENCY = THREE TIMES DAILY)
     Route: 048
     Dates: start: 20210508, end: 20210929
  34. PERIDEX (DEXAMETHASONE) [Concomitant]
     Indication: Prophylaxis
     Dosage: UNK UNK, PRN
     Route: 061
     Dates: start: 20210514, end: 20210929
  35. SODIUM BICARBONATE GARGLE [Concomitant]
     Indication: Prophylaxis
     Dosage: (FREQUENCY = AS NEEDED)
     Route: 061
     Dates: start: 20210514, end: 20210929
  36. CYMBALTA [Concomitant]
     Active Substance: DULOXETINE HYDROCHLORIDE
     Indication: Peripheral sensory neuropathy
     Dosage: 30 MG (FREQUENCY = ONCE DAILY)
     Route: 048
     Dates: start: 20210707, end: 20210929
  37. TANTUM GARGLE [Concomitant]
     Indication: Prophylaxis
     Dosage: UNK, PRN
     Route: 061
     Dates: start: 20210514, end: 20210929
  38. MEGACE F SUSPENSION [Concomitant]
     Indication: Prophylaxis
     Dosage: 5 ML, PRN
     Route: 048
     Dates: start: 20210818, end: 20210929
  39. NAFTOPIDIL [Concomitant]
     Active Substance: NAFTOPIDIL
     Indication: Haematuria
     Dosage: 25 MG (FREQUENCY = ONCE DAILY)
     Route: 048
     Dates: start: 20210927, end: 20210929
  40. ZOLPIDEM TARTRATE [Concomitant]
     Active Substance: ZOLPIDEM TARTRATE
     Indication: Insomnia
     Dosage: 6.25 MG (FREQUENCY = AS NEEDED)
     Route: 048
     Dates: start: 20210707, end: 20210929
  41. PANTOPRAZOLE SODIUM [Concomitant]
     Active Substance: PANTOPRAZOLE SODIUM
     Indication: Gastrointestinal disorder prophylaxis
     Dosage: 40 MG (FREQUENCY = ONCE DAILY)
     Route: 042
     Dates: start: 20210929, end: 20211013

REACTIONS (1)
  - Pneumonia [Recovered/Resolved]

NARRATIVE: CASE EVENT DATE: 20210929
